FAERS Safety Report 4285187-6 (Version None)
Quarter: 2004Q1

REPORT INFORMATION
  Report Type: 
  Country: None (occurrence: None)
  Receive Date: 20040204
  Receipt Date: 20031209
  Transmission Date: 20041129
  Serious: Yes (Hospitalization)
  Sender: FDA-Public Use
  Company Number: FR-ROCHE-353829

PATIENT
  Age: 27 Year
  Sex: Female
  Weight: 45 kg

DRUGS (7)
  1. CELLCEPT [Suspect]
     Route: 048
     Dates: start: 20031119, end: 20031205
  2. IBUPROFENE [Interacting]
     Route: 048
  3. PLAQUENIL [Concomitant]
     Route: 048
     Dates: start: 20031121
  4. CORTANCYL [Concomitant]
     Route: 048
     Dates: start: 20030501
  5. ACE INHIBITOR [Concomitant]
  6. COZAAR [Concomitant]
     Route: 048
     Dates: start: 20021001
  7. COVERSYL [Concomitant]
     Route: 048
     Dates: start: 20020601

REACTIONS (2)
  - DRUG INTERACTION [None]
  - STEVENS-JOHNSON SYNDROME [None]
